FAERS Safety Report 6690947-8 (Version None)
Quarter: 2010Q2

REPORT INFORMATION
  Report Type: 
  Country: None (occurrence: None)
  Receive Date: 20100421
  Receipt Date: 20100415
  Transmission Date: 20101027
  Serious: Yes (Death)
  Sender: FDA-Public Use
  Company Number: BE-ABBOTT-10P-013-0620802-00

PATIENT
  Sex: Male

DRUGS (7)
  1. LUCRIN DEPOT FOR INJECTION [Suspect]
     Indication: PROSTATE CANCER
     Dates: start: 20091201
  2. LUCRIN DEPOT FOR INJECTION [Suspect]
     Indication: METASTASES TO BONE
  3. OMIC [Concomitant]
     Indication: PROSTATISM
  4. ASAFLOW [Concomitant]
     Indication: CARDIOVASCULAR EVENT PROPHYLAXIS
  5. PLAVIX [Concomitant]
     Indication: CARDIOVASCULAR EVENT PROPHYLAXIS
  6. ZESTRIL [Concomitant]
     Indication: HYPERTENSION
  7. MOVICOL [Concomitant]
     Indication: DRUG USE FOR UNKNOWN INDICATION

REACTIONS (2)
  - CARDIAC FAILURE [None]
  - STRESS [None]
